FAERS Safety Report 21915710 (Version 1)
Quarter: 2023Q1

REPORT INFORMATION
  Report Type: Spontaneous
  Country: US (occurrence: US)
  Receive Date: 20230126
  Receipt Date: 20230126
  Transmission Date: 20230417
  Serious: No
  Sender: FDA-Public Use
  Company Number: US-BAYER-2023P004732

PATIENT
  Age: 40 Year
  Sex: Female

DRUGS (2)
  1. MIRENA [Suspect]
     Active Substance: LEVONORGESTREL
     Indication: Intrauterine contraception
     Dosage: 20?G/DAY
     Route: 015
     Dates: start: 202212, end: 202212
  2. MIRENA [Suspect]
     Active Substance: LEVONORGESTREL
     Indication: Premenstrual syndrome

REACTIONS (2)
  - Cervix disorder [None]
  - Complication of device insertion [None]

NARRATIVE: CASE EVENT DATE: 20221201
